FAERS Safety Report 9684227 (Version 2)
Quarter: 2013Q4

REPORT INFORMATION
  Report Type: Spontaneous
  Country: US (occurrence: US)
  Receive Date: 20131112
  Receipt Date: 20131230
  Transmission Date: 20140711
  Serious: Yes (Death)
  Sender: FDA-Public Use
  Company Number: US-GLAXOSMITHKLINE-A1049121A

PATIENT
  Age: 69 Year
  Sex: Female

DRUGS (6)
  1. VOTRIENT [Suspect]
     Indication: RENAL CANCER
     Dosage: 800MG PER DAY
     Route: 048
     Dates: start: 20130715
  2. PERCOCET [Concomitant]
  3. ROXICODONE [Concomitant]
  4. MUCINEX [Concomitant]
  5. STOOL SOFTENER [Concomitant]
  6. ALBUTEROL SULFATE [Concomitant]

REACTIONS (2)
  - Renal cancer [Fatal]
  - Metastases to central nervous system [Fatal]
